FAERS Safety Report 5127241-2 (Version None)
Quarter: 2006Q4

REPORT INFORMATION
  Report Type: 
  Country: None (occurrence: None)
  Receive Date: 20061010
  Receipt Date: 20060929
  Transmission Date: 20070319
  Serious: Yes (Death, Hospitalization)
  Sender: FDA-Public Use
  Company Number: 2006BI013922

PATIENT
  Age: 68 Year
  Sex: Female

DRUGS (2)
  1. NATALIZUMAB (NATALIZUMAB) [Suspect]
     Indication: MULTIPLE SCLEROSIS
     Dosage: IV
     Route: 042
     Dates: start: 20060801
  2. RENITEC [Concomitant]

REACTIONS (3)
  - CARDIOVASCULAR INSUFFICIENCY [None]
  - HYPOTENSION [None]
  - ILEUS [None]
